FAERS Safety Report 21164232 (Version 1)
Quarter: 2022Q3

REPORT INFORMATION
  Report Type: Spontaneous
  Country: US (occurrence: US)
  Receive Date: 20220803
  Receipt Date: 20220803
  Transmission Date: 20221027
  Serious: Yes (Hospitalization)
  Sender: FDA-Public Use
  Company Number: US-BEH-2022148062

PATIENT
  Age: 12 Year
  Sex: Female

DRUGS (8)
  1. HIZENTRA [Suspect]
     Active Substance: HUMAN IMMUNOGLOBULIN G
     Indication: Partial seizures
     Dosage: 4 GRAM, QW
     Route: 058
     Dates: start: 202109
  2. HIZENTRA [Suspect]
     Active Substance: HUMAN IMMUNOGLOBULIN G
     Indication: Immunodeficiency common variable
  3. HIZENTRA [Suspect]
     Active Substance: HUMAN IMMUNOGLOBULIN G
     Indication: Hypogammaglobulinaemia
  4. HIZENTRA [Suspect]
     Active Substance: HUMAN IMMUNOGLOBULIN G
     Indication: Von Willebrand^s disease
  5. HIZENTRA [Suspect]
     Active Substance: HUMAN IMMUNOGLOBULIN G
     Indication: Heavy menstrual bleeding
  6. AMINOCAPROIC ACID [Concomitant]
     Active Substance: AMINOCAPROIC ACID
     Dosage: 1750 MILLIGRAM, QID, 3 TO 5 DAYS
     Route: 048
  7. EPIDIOLEX [Concomitant]
     Active Substance: CANNABIDIOL
     Dosage: 1 MILLILITER, BID, FOR 1 WEEK
  8. EPIDIOLEX [Concomitant]
     Active Substance: CANNABIDIOL
     Dosage: 2 MILLILITER, BID

REACTIONS (3)
  - Menstrual disorder [Recovered/Resolved]
  - No adverse event [Unknown]
  - Off label use [Unknown]

NARRATIVE: CASE EVENT DATE: 20220601
